FAERS Safety Report 5758491-X (Version None)
Quarter: 2008Q2

REPORT INFORMATION
  Report Type: 
  Country: None (occurrence: None)
  Receive Date: 20080604
  Receipt Date: 20080522
  Transmission Date: 20081010
  Serious: No
  Sender: FDA-Public Use
  Company Number: APP200800442

PATIENT
  Age: 53 Year
  Sex: Female
  Weight: 56.6 kg

DRUGS (9)
  1. HEPARIN SODIUM INJECTION [Suspect]
     Indication: ANTICOAGULANT THERAPY
     Dosage: 5000 USP UNITS, ONCE, INTRAVENOUS BOLUS
     Route: 040
     Dates: start: 20080519, end: 20080519
  2. CEFAZOLIN [Concomitant]
  3. PROTAMINE SULFATE [Concomitant]
  4. BUPIVACAINE (MARCAIN-ADRENALIN) [Concomitant]
  5. FENTANYL TRANSDERMAL SYSTEM [Concomitant]
  6. LIDOCAINE IN DEXTROSE [Concomitant]
  7. DIAZEPAM [Concomitant]
  8. MORPHINE [Concomitant]
  9. SODIUM BICARBONATE [Concomitant]

REACTIONS (5)
  - CARDIO-RESPIRATORY ARREST [None]
  - CORONARY ARTERY OCCLUSION [None]
  - CORONARY ARTERY STENOSIS [None]
  - VENTRICULAR FIBRILLATION [None]
  - VENTRICULAR TACHYCARDIA [None]
